FAERS Safety Report 16276566 (Version 1)
Quarter: 2019Q2

REPORT INFORMATION
  Report Type: Spontaneous
  Country: IT (occurrence: IT)
  Receive Date: 20190506
  Receipt Date: 20190506
  Transmission Date: 20190711
  Serious: Yes (Other)
  Sender: FDA-Public Use
  Company Number: IT-JNJFOC-20190445255

PATIENT
  Age: 16 Year
  Sex: Male
  Weight: 75 kg

DRUGS (1)
  1. RISPERDAL [Suspect]
     Active Substance: RISPERIDONE
     Indication: PRODUCT USED FOR UNKNOWN INDICATION
     Route: 048
     Dates: start: 20190429, end: 20190429

REACTIONS (2)
  - Intentional self-injury [Unknown]
  - Agitation [Unknown]

NARRATIVE: CASE EVENT DATE: 20190429
